FAERS Safety Report 7455564-0 (Version None)
Quarter: 2011Q2

REPORT INFORMATION
  Report Type: 
  Country: None (occurrence: None)
  Receive Date: 20110503
  Receipt Date: 20110426
  Transmission Date: 20111010
  Serious: Yes (Hospitalization, Other)
  Sender: FDA-Public Use
  Company Number: JP-SHIRE-ALL1-2011-01272

PATIENT
  Age: 68 Year
  Sex: Male

DRUGS (10)
  1. FOSRENOL [Suspect]
     Indication: HYPERPHOSPHATAEMIA
     Dosage: 750 MG, 1X/DAY:QD
     Route: 048
     Dates: start: 20100908
  2. WARFARIN POTASSIUM [Suspect]
     Indication: HYPERPHOSPHATAEMIA
     Dosage: 3 MG, 1X/DAY:QD
     Route: 048
  3. OXAROL [Concomitant]
     Dosage: 5 ?G, UNKNOWN
     Route: 042
     Dates: start: 20101006
  4. ALLOPURINOL [Concomitant]
     Indication: PRODUCT USED FOR UNKNOWN INDICATION
     Dosage: 100 MG, UNKNOWN
     Route: 048
  5. LANIRAPID [Concomitant]
     Indication: PRODUCT USED FOR UNKNOWN INDICATION
     Dosage: 0.05 MG, UNKNOWN
     Route: 048
  6. PARIET [Concomitant]
     Indication: PRODUCT USED FOR UNKNOWN INDICATION
     Dosage: 10 MG, UNKNOWN
     Route: 048
  7. NESPO [Concomitant]
     Indication: PRODUCT USED FOR UNKNOWN INDICATION
     Dosage: 10 ?G, UNKNOWN
     Route: 042
  8. SEVELAMER HYDROCHLORIDE [Suspect]
     Indication: HYPERPHOSPHATAEMIA
     Dosage: 3000 MG, 1X/DAY:QD
     Route: 048
     Dates: start: 20100420
  9. REGPARA [Concomitant]
     Indication: HYPERPARATHYROIDISM SECONDARY
     Dosage: 100 MG, UNKNOWN
     Route: 048
     Dates: start: 20100120
  10. OXAROL [Concomitant]
     Indication: PRODUCT USED FOR UNKNOWN INDICATION
     Dosage: 7.5 ?G, UNKNOWN
     Route: 042
     Dates: start: 20100113, end: 20101004

REACTIONS (3)
  - ANASTOMOTIC ULCER [None]
  - HYPOTHYROIDISM [None]
  - ANGINA PECTORIS [None]
